FAERS Safety Report 5891668-1 (Version None)
Quarter: 2008Q3

REPORT INFORMATION
  Report Type: 
  Country: None (occurrence: None)
  Receive Date: 20080922
  Receipt Date: 20080910
  Transmission Date: 20090109
  Serious: Yes (Other)
  Sender: FDA-Public Use
  Company Number: AR-PFIZER INC-2008077005

PATIENT
  Age: 43 Year
  Sex: Male

DRUGS (5)
  1. XANAX [Suspect]
     Indication: INSOMNIA
     Route: 048
  2. KLONOPIN [Suspect]
     Indication: INSOMNIA
  3. PROZAC [Suspect]
     Indication: INSOMNIA
  4. LUNESTA [Suspect]
     Indication: INSOMNIA
  5. STILNOX [Suspect]
     Indication: INSOMNIA

REACTIONS (5)
  - DEPRESSED MOOD [None]
  - ERECTILE DYSFUNCTION [None]
  - INSOMNIA [None]
  - INTENTIONAL OVERDOSE [None]
  - LIBIDO DECREASED [None]
